FAERS Safety Report 24910759 (Version 3)
Quarter: 2025Q2

REPORT INFORMATION
  Report Type: Report from Study
  Country: US (occurrence: US)
  Receive Date: 20250131
  Receipt Date: 20250506
  Transmission Date: 20250716
  Serious: No
  Sender: SUNOVION
  Company Number: US-SUMITOMO PHARMA SWITZERLAND GMBH-2025SPA000778

PATIENT

DRUGS (5)
  1. ORGOVYX [Suspect]
     Active Substance: RELUGOLIX
     Indication: Prostate cancer
     Dosage: 360 MG, SINGLE
     Route: 048
  2. ORGOVYX [Suspect]
     Active Substance: RELUGOLIX
     Dosage: 120 MG, QD
     Route: 048
     Dates: start: 20250124
  3. OMEPRAZOLE [Suspect]
     Active Substance: OMEPRAZOLE
     Indication: Gastrooesophageal reflux disease
     Route: 065
  4. OMEPRAZOLE [Suspect]
     Active Substance: OMEPRAZOLE
     Route: 065
  5. ERLEADA [Concomitant]
     Active Substance: APALUTAMIDE
     Indication: Prostate cancer
     Dosage: 240 MG, QD
     Route: 065
     Dates: start: 20250307

REACTIONS (7)
  - Bowel movement irregularity [Unknown]
  - Drug interaction [Unknown]
  - Gastrooesophageal reflux disease [Unknown]
  - Haematocrit decreased [Unknown]
  - Fatigue [Unknown]
  - Haemoglobin decreased [Unknown]
  - Incorrect dose administered [Unknown]
